FAERS Safety Report 6081407-6 (Version None)
Quarter: 2009Q1

REPORT INFORMATION
  Report Type: 
  Country: None (occurrence: None)
  Receive Date: 20090218
  Receipt Date: 20090213
  Transmission Date: 20090719
  Serious: Yes (Hospitalization)
  Sender: FDA-Public Use
  Company Number: DE-BRISTOL-MYERS SQUIBB COMPANY-14507800

PATIENT
  Age: 71 Year
  Sex: Male

DRUGS (3)
  1. CETUXIMAB [Suspect]
     Indication: NON-SMALL CELL LUNG CANCER METASTATIC
     Dosage: 5MG/ML. RECENT INFUSION 09-FEB-2009
     Route: 042
     Dates: start: 20080905
  2. CARBOPLATIN [Suspect]
     Indication: NON-SMALL CELL LUNG CANCER METASTATIC
     Dosage: 1DF-AUC5. RECENT INFUSION 09-FEB-2009
     Route: 042
     Dates: start: 20080905
  3. DOCETAXEL [Suspect]
     Indication: NON-SMALL CELL LUNG CANCER METASTATIC
     Dosage: RECENT INFUSION ON 09-FEB-2009
     Route: 042
     Dates: start: 20080905

REACTIONS (1)
  - ANAEMIA [None]
